FAERS Safety Report 6758942-8 (Version None)
Quarter: 2010Q2

REPORT INFORMATION
  Report Type: 
  Country: None (occurrence: None)
  Receive Date: 20100607
  Receipt Date: 20100505
  Transmission Date: 20101027
  Serious: No
  Sender: FDA-Public Use
  Company Number: US-BAYER-201015236BCC

PATIENT
  Sex: Female

DRUGS (1)
  1. MIDOL [Suspect]
     Indication: PAIN
     Route: 048

REACTIONS (3)
  - ABDOMINAL DISTENSION [None]
  - MUSCLE SPASMS [None]
  - PAIN [None]
